FAERS Safety Report 7999931-5 (Version None)
Quarter: 2011Q4

REPORT INFORMATION
  Report Type: 
  Country: None (occurrence: None)
  Receive Date: 20111222
  Receipt Date: 20111214
  Transmission Date: 20120403
  Serious: No
  Sender: FDA-Public Use
  Company Number: US-BIOGENIDEC-2011BI047376

PATIENT
  Age: 68 Year
  Sex: Female

DRUGS (4)
  1. TYSABRI [Suspect]
     Indication: MULTIPLE SCLEROSIS
     Route: 042
     Dates: start: 20100329
  2. AVONEX [Concomitant]
     Indication: MULTIPLE SCLEROSIS
     Route: 030
     Dates: start: 20100301
  3. TYSABRI [Suspect]
     Route: 042
  4. TYSABRI [Suspect]
     Route: 042
     Dates: end: 20110208

REACTIONS (1)
  - ADVERSE DRUG REACTION [None]
